FAERS Safety Report 6334902-6 (Version None)
Quarter: 2009Q3

REPORT INFORMATION
  Report Type: 
  Country: None (occurrence: None)
  Receive Date: 20090831
  Receipt Date: 20090824
  Transmission Date: 20100115
  Serious: Yes (Hospitalization)
  Sender: FDA-Public Use
  Company Number: US-B.I. PHARMACEUTICALS,INC./RIDGEFIELD-2009-BP-09906BP

PATIENT
  Sex: Male

DRUGS (2)
  1. DULCOLAX [Suspect]
     Indication: CONSTIPATION
     Dosage: 10 MG
     Route: 048
  2. ASPIRIN [Concomitant]

REACTIONS (4)
  - COLON CANCER [None]
  - DRUG INEFFECTIVE [None]
  - HYPERTENSION [None]
  - IRON DEFICIENCY [None]
